FAERS Safety Report 6129788-9 (Version None)
Quarter: 2009Q1

REPORT INFORMATION
  Report Type: 
  Country: None (occurrence: None)
  Receive Date: 20090323
  Receipt Date: 20090323
  Transmission Date: 20090719
  Serious: No
  Sender: FDA-Public Use
  Company Number: None

PATIENT
  Age: 70 Year
  Sex: Male

DRUGS (2)
  1. FUROSEMIDE 20MG ROXANE [Suspect]
     Indication: HYPERTENSION
     Dosage: 1 TABLET DAILY PO
     Route: 048
     Dates: start: 20090102, end: 20090106
  2. LABETOLOL 100 MG IVAX [Suspect]
     Indication: HYPERTENSION
     Dosage: 1 TABLET EVERY 12 HOURS
     Route: 048
     Dates: start: 20090102, end: 20090105

REACTIONS (1)
  - HYPOTENSION [None]
